FAERS Safety Report 7629565-3 (Version None)
Quarter: 2011Q3

REPORT INFORMATION
  Report Type: 
  Country: None (occurrence: None)
  Receive Date: 20110714
  Receipt Date: 20110706
  Transmission Date: 20111222
  Serious: Yes (Other)
  Sender: FDA-Public Use
  Company Number: 2011SP031994

PATIENT
  Age: 9 Year
  Sex: Male

DRUGS (1)
  1. CHILDREN'S CLARITIN [Suspect]
     Indication: NASAL CONGESTION
     Dosage: 5 MG;ONCE;PO
     Route: 048
     Dates: start: 20110628

REACTIONS (3)
  - CRYING [None]
  - TREMOR [None]
  - HALLUCINATION [None]
